FAERS Safety Report 9292995 (Version 2)
Quarter: 2014Q1

REPORT INFORMATION
  Report Type: Spontaneous
  Country: US (occurrence: None)
  Receive Date: 20121212
  Receipt Date: 20130314
  Transmission Date: 20141002
  Serious: No
  Sender: FDA-Public Use
  Company Number: 1210USA009859

PATIENT
  Age: 61 Year
  Sex: Male

DRUGS (4)
  1. VICTRELIS [Suspect]
     Indication: HEPATITIS C
     Route: 048
     Dates: start: 2011, end: 2011
  2. PEGASYS [Suspect]
     Dates: start: 2011, end: 2011
  3. RIBASPHERE [Suspect]
     Dates: start: 2011, end: 2011
  4. SEROQUEL (QUETIAPINE FUMARATE) [Concomitant]

REACTIONS (4)
  - No therapeutic response [None]
  - Nausea [None]
  - Dizziness [None]
  - Abdominal pain upper [None]
